FAERS Safety Report 6220057-5 (Version None)
Quarter: 2009Q2

REPORT INFORMATION
  Report Type: 
  Country: None (occurrence: None)
  Receive Date: 20090609
  Receipt Date: 20090603
  Transmission Date: 20091009
  Serious: Yes (Other)
  Sender: FDA-Public Use
  Company Number: PHEH2009US05684

PATIENT
  Sex: Male

DRUGS (3)
  1. AFINITOR [Suspect]
     Dosage: UNK
  2. LEXAPRO [Interacting]
     Indication: ANTIDEPRESSANT THERAPY
  3. EFFEXOR [Interacting]

REACTIONS (2)
  - DRUG INTERACTION [None]
  - METASTASES TO LIVER [None]
